FAERS Safety Report 19840005 (Version 1)
Quarter: 2021Q3

REPORT INFORMATION
  Report Type: Spontaneous
  Country: AE (occurrence: AE)
  Receive Date: 20210916
  Receipt Date: 20210916
  Transmission Date: 20211014
  Serious: Yes (Life-Threatening)
  Sender: FDA-Public Use
  Company Number: None

PATIENT
  Age: 75 Year
  Sex: Female
  Weight: 55 kg

DRUGS (7)
  1. FLATUNA [Concomitant]
  2. DIOVAN [Concomitant]
     Active Substance: VALSARTAN
  3. MAGNESIUM GLYCINATE [Concomitant]
     Active Substance: MAGNESIUM GLYCINATE
  4. EYLEA [Suspect]
     Active Substance: AFLIBERCEPT
  5. GLUCERNA MILK [Concomitant]
  6. VIT D [Concomitant]
     Active Substance: VITAMIN D NOS
  7. KEPPRA [Concomitant]
     Active Substance: LEVETIRACETAM

REACTIONS (5)
  - Abdominal distension [None]
  - Chills [None]
  - Feeling jittery [None]
  - Cerebrovascular accident [None]
  - Dyspnoea [None]

NARRATIVE: CASE EVENT DATE: 20151215
